FAERS Safety Report 13992364 (Version 1)
Quarter: 2017Q3

REPORT INFORMATION
  Report Type: Spontaneous
  Country: US (occurrence: US)
  Receive Date: 20170920
  Receipt Date: 20170920
  Transmission Date: 20171128
  Serious: No
  Sender: FDA-Public Use
  Company Number: US-JNJFOC-20170825479

PATIENT
  Sex: Male
  Weight: 91.63 kg

DRUGS (2)
  1. STELARA [Suspect]
     Active Substance: USTEKINUMAB
     Indication: PSORIATIC ARTHROPATHY
     Route: 058
     Dates: start: 2017
  2. STELARA [Suspect]
     Active Substance: USTEKINUMAB
     Indication: PSORIASIS
     Route: 058
     Dates: start: 2017

REACTIONS (5)
  - Inappropriate schedule of drug administration [Unknown]
  - Product packaging issue [Unknown]
  - Wrong technique in product usage process [Unknown]
  - Drug administration error [Unknown]
  - Off label use [Unknown]

NARRATIVE: CASE EVENT DATE: 2017
